FAERS Safety Report 6647688-2 (Version None)
Quarter: 2010Q1

REPORT INFORMATION
  Report Type: 
  Country: None (occurrence: None)
  Receive Date: 20100323
  Receipt Date: 20100323
  Transmission Date: 20100710
  Serious: Yes (Other)
  Sender: FDA-Public Use
  Company Number: None

PATIENT
  Sex: Female
  Weight: 45.3597 kg

DRUGS (1)
  1. LIPITOR [Suspect]
     Indication: STENT PLACEMENT
     Dosage: ? 1/DAY
     Dates: start: 20090905, end: 20090909

REACTIONS (3)
  - ASTHENIA [None]
  - DYSSTASIA [None]
  - PAIN [None]
